FAERS Safety Report 6718243-0 (Version None)
Quarter: 2010Q2

REPORT INFORMATION
  Report Type: 
  Country: None (occurrence: None)
  Receive Date: 20100505
  Receipt Date: 20100427
  Transmission Date: 20101027
  Serious: Yes (Hospitalization, Other)
  Sender: FDA-Public Use
  Company Number: CRC-10-067

PATIENT
  Age: 43 Year
  Sex: Female

DRUGS (8)
  1. MIDRIN CAPSULES [Suspect]
     Indication: HEADACHE
     Dates: start: 20100401
  2. GAMUNEX [Suspect]
     Indication: MYASTHENIA GRAVIS
     Dosage: 50 GM; QD; IV
     Route: 042
     Dates: start: 20100331, end: 20100401
  3. POTASSIUM CHLORIDE [Concomitant]
  4. CALCIUM [Concomitant]
  5. OMEPRAZOLE [Concomitant]
  6. LASIX [Concomitant]
  7. VITAMIN B12 [Concomitant]
  8. PREDNISONE [Concomitant]

REACTIONS (5)
  - DYSARTHRIA [None]
  - DYSPHAGIA [None]
  - HEADACHE [None]
  - HEMIPARESIS [None]
  - INFUSION RELATED REACTION [None]
